FAERS Safety Report 18179047 (Version 1)
Quarter: 2020Q3

REPORT INFORMATION
  Report Type: Spontaneous
  Country: DE (occurrence: DE)
  Receive Date: 20200821
  Receipt Date: 20200821
  Transmission Date: 20201103
  Serious: Yes (Hospitalization)
  Sender: FDA-Public Use
  Company Number: DE-TEVA-2020-DE-1815738

PATIENT
  Age: 87 Year
  Sex: Female
  Weight: 65 kg

DRUGS (7)
  1. VALPROINSAURE (VALPROIC ACID) [Suspect]
     Active Substance: VALPROIC ACID
     Dosage: 1500 MILLIGRAM DAILY; 1?1?1?0
     Route: 048
  2. ACETYLSALICYLSAURE [Concomitant]
     Active Substance: ASPIRIN
     Dosage: 100 MILLIGRAM DAILY; 1?0?0?0
     Route: 048
  3. TORASEMID [Concomitant]
     Active Substance: TORSEMIDE
     Dosage: 5 MILLIGRAM DAILY; 1?0?0?0
     Route: 048
  4. RAMIPRIL. [Concomitant]
     Active Substance: RAMIPRIL
     Dosage: 5 MILLIGRAM DAILY; 1?0?0?0
     Route: 048
  5. LETROZOL [Concomitant]
     Active Substance: LETROZOLE
     Dosage: 2.5 MILLIGRAM DAILY; 1?0?0?0
     Route: 048
  6. METAMIZOL [Concomitant]
     Active Substance: METAMIZOLE SODIUM
     Dosage: 80 GTT DAILY; 1?1?1?1, DROPS
     Route: 048
  7. DICLOFENAC [Concomitant]
     Active Substance: DICLOFENAC
     Dosage: 10 MG, IF NECESSARY
     Route: 048

REACTIONS (9)
  - Pyrexia [Unknown]
  - Depressed level of consciousness [Unknown]
  - Reflexes abnormal [Unknown]
  - Disorientation [Unknown]
  - Postictal paralysis [Unknown]
  - Hemiparesis [Unknown]
  - Fatigue [Unknown]
  - Toxic encephalopathy [Unknown]
  - Seizure [Unknown]
